FAERS Safety Report 9401335 (Version 1)
Quarter: 2013Q3

REPORT INFORMATION
  Report Type: Spontaneous
  Country: US (occurrence: US)
  Receive Date: 20130715
  Receipt Date: 20130715
  Transmission Date: 20140515
  Serious: No
  Sender: FDA-Public Use
  Company Number: US-US-EMD SERONO, INC.-7140423

PATIENT
  Sex: Female

DRUGS (3)
  1. REBIF [Suspect]
     Indication: MULTIPLE SCLEROSIS
     Route: 058
     Dates: start: 20120412
  2. IBUPROFEN [Concomitant]
     Indication: PREMEDICATION
  3. DEPOPROVERA [Concomitant]
     Indication: ORAL CONTRACEPTION
     Dates: start: 20120611

REACTIONS (2)
  - Implant site haemorrhage [Not Recovered/Not Resolved]
  - Headache [Unknown]
